FAERS Safety Report 4594648-1 (Version None)
Quarter: 2005Q1

REPORT INFORMATION
  Report Type: 
  Country: None (occurrence: None)
  Receive Date: 20050301
  Receipt Date: 20041118
  Transmission Date: 20050727
  Serious: No
  Sender: FDA-Public Use
  Company Number: US-BRISTOL-MYERS SQUIBB COMPANY-12770798

PATIENT
  Age: 43 Year
  Sex: Female
  Weight: 53 kg

DRUGS (8)
  1. ERBITUX [Suspect]
     Indication: COLORECTAL CANCER
     Dosage: START DATE 28-OCT-04, ALSO GIVEN ON 10-NOV-04
     Route: 042
     Dates: start: 20040101, end: 20040101
  2. IRINOTECAN HCL [Concomitant]
     Dosage: GIVEN ON 28-OCT-04, 04-NOV-04 + 10-NOV-04
  3. TYLENOL (CAPLET) [Concomitant]
     Indication: PREMEDICATION
     Dosage: DOSAGE FORM = 1 TABLET, GIVEN 28-OCT-04 + 10-NOV-04
     Dates: start: 20040101, end: 20040101
  4. BENADRYL [Concomitant]
     Indication: PREMEDICATION
     Dosage: GIVEN ON 28-OCT-04 + 10-NOV-04
     Route: 042
     Dates: start: 20040101, end: 20040101
  5. ZANTAC [Concomitant]
     Indication: PREMEDICATION
     Dosage: GIVEN ON 28-OCT-04 + 10-NOV-04
     Route: 042
     Dates: start: 20040101, end: 20040101
  6. DECADRON [Concomitant]
     Indication: PREMEDICATION
     Dosage: PRE-IRINOTECAN MED, GIVEN ON 28-OCT, 04-NOV + 10-NOV 2004
     Route: 042
  7. KYTRIL [Concomitant]
     Indication: PREMEDICATION
     Dosage: PRE-IRINOTECAN MED, GIVEN ON 28-OCT, 04-NOV + 10-NOV 2004
     Route: 042
  8. ATIVAN [Concomitant]

REACTIONS (1)
  - INSOMNIA [None]
